FAERS Safety Report 5279955-1 (Version None)
Quarter: 2007Q1

REPORT INFORMATION
  Report Type: 
  Country: None (occurrence: None)
  Receive Date: 20070329
  Receipt Date: 20070322
  Transmission Date: 20070707
  Serious: Yes (Death)
  Sender: FDA-Public Use
  Company Number: US-JNJFOC-20070305626

PATIENT
  Sex: Male

DRUGS (3)
  1. DURAGESIC-100 [Suspect]
     Indication: PAIN
     Dosage: 4 100 UG/HR PATCHES
     Route: 062
  2. PERCOCET [Concomitant]
     Indication: PAIN
     Route: 048
  3. MORPHINE SULFATE [Concomitant]
     Indication: PAIN
     Dosage: ONE EVERY 4-6 HOURS
     Route: 048

REACTIONS (1)
  - DEATH [None]
